FAERS Safety Report 4927692-2 (Version None)
Quarter: 2006Q1

REPORT INFORMATION
  Report Type: 
  Country: None (occurrence: None)
  Receive Date: 20060228
  Receipt Date: 20060117
  Transmission Date: 20060701
  Serious: Yes (Hospitalization, Other)
  Sender: FDA-Public Use
  Company Number: US-MERCK-0601USA02273

PATIENT
  Age: 55 Year
  Sex: Male
  Weight: 68 kg

DRUGS (3)
  1. VIOXX [Suspect]
     Indication: NECK PAIN
     Route: 048
     Dates: start: 19991014, end: 20040806
  2. ASPIRIN [Concomitant]
     Route: 065
  3. IBUPROFEN [Concomitant]
     Route: 065

REACTIONS (20)
  - ACUTE MYOCARDIAL INFARCTION [None]
  - ANAEMIA [None]
  - ANGINA PECTORIS [None]
  - ANGINA UNSTABLE [None]
  - ARRHYTHMIA [None]
  - ASTHENIA [None]
  - CHEST PAIN [None]
  - CORONARY ARTERY DISEASE [None]
  - DEPRESSION [None]
  - DUODENAL ULCER [None]
  - DUODENITIS [None]
  - DYSLIPIDAEMIA [None]
  - GASTROINTESTINAL HAEMORRHAGE [None]
  - GASTROOESOPHAGEAL REFLUX DISEASE [None]
  - HYPERLIPIDAEMIA [None]
  - INGUINAL HERNIA [None]
  - MELAENA [None]
  - MYOCARDIAL ISCHAEMIA [None]
  - THROMBOPHLEBITIS SUPERFICIAL [None]
  - VENTRICULAR TACHYCARDIA [None]
